FAERS Safety Report 5801160-8 (Version None)
Quarter: 2008Q3

REPORT INFORMATION
  Report Type: 
  Country: None (occurrence: None)
  Receive Date: 20080707
  Receipt Date: 20080702
  Transmission Date: 20090109
  Serious: Yes (Death, Other)
  Sender: FDA-Public Use
  Company Number: PHHY2008GB11480

PATIENT
  Age: 22 Year
  Sex: Female

DRUGS (7)
  1. CUBICIN [Suspect]
     Indication: ENTEROCOCCAL INFECTION
     Dosage: 350 MG ON ALTERNATE DATE
     Dates: start: 20080609
  2. CYCLOSPORINE [Suspect]
     Indication: APLASTIC ANAEMIA
     Dosage: UNK
     Dates: start: 20080501
  3. MEROPENEM [Suspect]
     Indication: NEUTROPENIC SEPSIS
     Dosage: 1 G, BID
     Route: 042
     Dates: start: 20080529, end: 20080618
  4. CASPOFUNGIN [Concomitant]
     Indication: FUNGAL INFECTION
     Dosage: 35 MG PER DAY
     Route: 042
  5. TRANEXAMIC ACID [Concomitant]
     Indication: HAEMORRHAGE
     Dosage: 1 G, TID
     Route: 042
     Dates: start: 20080602, end: 20080618
  6. THIOPENTAL SODIUM [Concomitant]
  7. LEVETIRACETAM [Concomitant]

REACTIONS (5)
  - CONVULSION [None]
  - DEATH [None]
  - ENTEROCOCCAL SEPSIS [None]
  - FUNGAL INFECTION [None]
  - NOSOCOMIAL INFECTION [None]
